FAERS Safety Report 18480320 (Version 2)
Quarter: 2021Q1

REPORT INFORMATION
  Report Type: Report from Study
  Country: AU (occurrence: AU)
  Receive Date: 20201109
  Receipt Date: 20210325
  Transmission Date: 20210419
  Serious: Yes (Other)
  Sender: FDA-Public Use
  Company Number: AU-PFIZER INC-2020425432

PATIENT
  Age: 11 Year
  Sex: Male
  Weight: 38 kg

DRUGS (6)
  1. MINOXIDIL. [Concomitant]
     Active Substance: MINOXIDIL
     Indication: ALOPECIA AREATA
     Dosage: 0.5 MG, 1X/DAY
     Route: 048
  2. TOFACITINIB CITRATE [Suspect]
     Active Substance: TOFACITINIB CITRATE
     Dosage: 15 MG, DAILY
     Route: 048
  3. TOFACITINIB CITRATE [Suspect]
     Active Substance: TOFACITINIB CITRATE
     Indication: ALOPECIA AREATA
     Dosage: 5 MG, DAILY
     Route: 048
  4. PREDNISOLONE. [Concomitant]
     Active Substance: PREDNISOLONE
     Dosage: 0.13 MG/KG/DAY TAPERED OVER 8 WEEKS AT 15 MONTHS INTO TOFACITINIB TREATMENT
  5. PREDNISOLONE. [Concomitant]
     Active Substance: PREDNISOLONE
     Indication: ALOPECIA AREATA
     Dosage: 0.13 MG/KG/DAY (MAXIMUM) TAPERED OVER 4 WEEKS
  6. CLOBETASOL PROPIONATE. [Concomitant]
     Active Substance: CLOBETASOL PROPIONATE
     Indication: ALOPECIA AREATA
     Dosage: UNK, INTERMITTENTLY

REACTIONS (6)
  - Upper respiratory tract infection [Unknown]
  - Eosinophilia [Unknown]
  - Blood urea increased [Unknown]
  - Hyperkalaemia [Unknown]
  - Aspartate aminotransferase increased [Unknown]
  - Alanine aminotransferase increased [Unknown]
